FAERS Safety Report 4641774-4 (Version None)
Quarter: 2005Q2

REPORT INFORMATION
  Report Type: 
  Country: None (occurrence: None)
  Receive Date: 20050421
  Receipt Date: 20050407
  Transmission Date: 20051028
  Serious: Yes (Disabling)
  Sender: FDA-Public Use
  Company Number: US-MERCK-0504USA00887

PATIENT
  Age: 64 Year
  Sex: Female

DRUGS (2)
  1. ZETIA [Suspect]
     Indication: BLOOD CHOLESTEROL INCREASED
     Route: 048
     Dates: start: 20050120, end: 20050101
  2. [COMPOSITION UNSPECIFIED] [Concomitant]
     Indication: BLOOD PRESSURE INCREASED
     Route: 065

REACTIONS (2)
  - MYOSITIS [None]
  - PAIN IN EXTREMITY [None]
